FAERS Safety Report 9189127 (Version 4)
Quarter: 2013Q3

REPORT INFORMATION
  Report Type: Report from Study
  Country: CA (occurrence: CA)
  Receive Date: 20130326
  Receipt Date: 20130828
  Transmission Date: 20140515
  Serious: Yes (Life-Threatening, Hospitalization)
  Sender: FDA-Public Use
  Company Number: CA-BRISTOL-MYERS SQUIBB COMPANY-17447384

PATIENT
  Age: 7 Year
  Sex: Male

DRUGS (13)
  1. DASATINIB [Suspect]
     Indication: ACUTE LYMPHOCYTIC LEUKAEMIA
     Dosage: 50MG
     Route: 048
     Dates: start: 20121121
  2. ETOPOSIDE [Suspect]
     Indication: ACUTE LYMPHOCYTIC LEUKAEMIA
     Route: 042
     Dates: start: 20130331, end: 20130402
  3. IFOSFAMIDE [Suspect]
     Indication: ACUTE LYMPHOCYTIC LEUKAEMIA
     Route: 042
     Dates: start: 20130306, end: 20130308
  4. HYDROCORTISONE [Suspect]
     Indication: ACUTE LYMPHOCYTIC LEUKAEMIA
     Dosage: 12-12FEB13?5-5MAR13-12MG?02-07APR13
     Route: 037
     Dates: start: 20130212, end: 20130407
  5. G-CSF [Suspect]
     Indication: ACUTE LYMPHOCYTIC LEUKAEMIA
     Dosage: 18-22FEB13-120MG?11MAR13-115MICROGRAM?03APR13-ONG?105MG
     Route: 058
     Dates: start: 20130218
  6. CYCLOPHOSPHAMIDE [Suspect]
     Indication: ACUTE LYMPHOCYTIC LEUKAEMIA
     Route: 042
     Dates: start: 20130213, end: 20130215
  7. VINCRISTINE [Suspect]
     Indication: ACUTE LYMPHOCYTIC LEUKAEMIA
     Dosage: ADMINISTERED 13+17FEB13?6-6MAR13,10-10MAR13-1.3MG
     Route: 042
     Dates: start: 20130213, end: 20130310
  8. LEUCOVORIN [Suspect]
     Indication: ACUTE LYMPHOCYTIC LEUKAEMIA
     Dosage: 13-14FEB13?6-7MAR-13.4MG
     Route: 042
     Dates: start: 20130213, end: 20130307
  9. METHOTREXATE [Suspect]
     Indication: ACUTE LYMPHOCYTIC LEUKAEMIA
     Dosage: MTX HD-4.445MG:12FEB13:IV?MTX-12MG:12FEB13:IT?5-5MAR13-12MGIT;HD-4445MGIV?02-02APR13
     Route: 042
     Dates: start: 20130212
  10. DEXAMETHASONE [Suspect]
     Indication: ACUTE LYMPHOCYTIC LEUKAEMIA
     Dosage: 12-16FEB13?5-9MAR13-18MG
     Route: 048
     Dates: start: 20130212, end: 20130407
  11. ARA-C [Suspect]
     Indication: ACUTE LYMPHOCYTIC LEUKAEMIA
     Dosage: 05-MAR-2013?29MAR-30MAR13?ROUT:IV
     Route: 037
     Dates: start: 20130212, end: 20130330
  12. PEG-L-ASPARAGINASE [Suspect]
     Indication: ACUTE LYMPHOCYTIC LEUKAEMIA
     Dosage: 17-17MAR13?10-10MAR13?03-03APR13
     Route: 042
     Dates: start: 20130217, end: 20130403
  13. DAUNORUBICIN [Suspect]
     Indication: ACUTE LYMPHOCYTIC LEUKAEMIA
     Route: 042
     Dates: start: 20130309, end: 20130309

REACTIONS (4)
  - Febrile neutropenia [Recovered/Resolved]
  - Sepsis [Recovered/Resolved]
  - Decreased appetite [Recovered/Resolved]
  - Colitis [Recovered/Resolved]
